FAERS Safety Report 8969917 (Version 1)
Quarter: 2012Q4

REPORT INFORMATION
  Report Type: 
  Country: US (occurrence: US)
  Receive Date: 20121218
  Receipt Date: 20121218
  Transmission Date: 20130627
  Serious: No
  Sender: FDA-Public Use
  Company Number: US-BRISTOL-MYERS SQUIBB COMPANY-16225021

PATIENT
  Age: 35 Year
  Sex: Female

DRUGS (4)
  1. ABILIFY [Suspect]
     Indication: BIPOLAR DISORDER
     Dosage: Received 2-3 Yrs ago
Dose reduced to 7.5mg on 10Nov11
     Route: 048
  2. PROZAC [Concomitant]
     Indication: BIPOLAR DISORDER
     Route: 048
  3. WELLBUTRIN SR [Concomitant]
     Indication: BIPOLAR DISORDER
     Route: 048
  4. TOPAMAX [Concomitant]
     Indication: BIPOLAR DISORDER
     Route: 048

REACTIONS (1)
  - Urinary incontinence [Unknown]
